FAERS Safety Report 5219649-1 (Version None)
Quarter: 2007Q1

REPORT INFORMATION
  Report Type: 
  Country: None (occurrence: None)
  Receive Date: 20070125
  Receipt Date: 20070117
  Transmission Date: 20070707
  Serious: Yes (Hospitalization)
  Sender: FDA-Public Use
  Company Number: FR-PFIZER INC-2006057540

PATIENT
  Age: 90 Year
  Sex: Female
  Weight: 91 kg

DRUGS (9)
  1. TRINITRINA [Suspect]
     Indication: ANGINA PECTORIS
     Route: 061
  2. ALDACTAZINE [Interacting]
     Indication: ESSENTIAL HYPERTENSION
     Dosage: TEXT:1DF-FREQ:INTERVAL:  EVERY DAY
     Route: 048
  3. FUROSEMIDE [Interacting]
     Indication: ESSENTIAL HYPERTENSION
     Route: 048
  4. NICORANDIL [Interacting]
     Indication: ANGINA PECTORIS
     Route: 048
  5. VOLTAREN [Interacting]
     Indication: ARTHROPATHY
     Route: 048
  6. OMEPRAZOLE [Concomitant]
     Route: 048
  7. CODEINE PHOSPHATE AND ACETAMINOPHEN [Concomitant]
     Dosage: TEXT:600/50 MG
     Route: 048
  8. VASTAREL [Concomitant]
     Route: 065
  9. DOMPERIDONE [Concomitant]
     Route: 065

REACTIONS (8)
  - DISCOMFORT [None]
  - DRUG INTERACTION [None]
  - FALL [None]
  - HEAD INJURY [None]
  - MALAISE [None]
  - ORTHOSTATIC HYPOTENSION [None]
  - RENAL FAILURE ACUTE [None]
  - VISION BLURRED [None]
